FAERS Safety Report 19351289 (Version 1)
Quarter: 2021Q2

REPORT INFORMATION
  Report Type: Spontaneous
  Country: US (occurrence: US)
  Receive Date: 20210531
  Receipt Date: 20210531
  Transmission Date: 20210717
  Serious: No
  Sender: FDA-Public Use
  Company Number: US-PFIZER INC-2021247373

PATIENT
  Age: 16 Year
  Sex: Male
  Weight: 77.11 kg

DRUGS (1)
  1. COLESTIPOL HCL [Suspect]
     Active Substance: COLESTIPOL HYDROCHLORIDE
     Indication: DIARRHOEA
     Dosage: 1 G, 2X/DAY (ONE GM, ONE TABLET BY MOUTH TWICE PER DAY)
     Route: 048
     Dates: start: 20181010

REACTIONS (3)
  - Off label use [Unknown]
  - Dysphagia [Not Recovered/Not Resolved]
  - Wrong technique in product usage process [Unknown]

NARRATIVE: CASE EVENT DATE: 20181010
